FAERS Safety Report 8509626 (Version 8)
Quarter: 2013Q3

REPORT INFORMATION
  Report Type: Spontaneous
  Country: US (occurrence: US)
  Receive Date: 20120413
  Receipt Date: 20130926
  Transmission Date: 20140515
  Serious: Yes (Other)
  Sender: FDA-Public Use
  Company Number: US-PFIZER INC-2012088055

PATIENT
  Age: 84 Year
  Sex: Female
  Weight: 70.3 kg

DRUGS (6)
  1. LYRICA [Suspect]
     Indication: NEUROPATHY PERIPHERAL
     Dosage: 75 MG, 2X/DAY
     Route: 048
  2. LYRICA [Suspect]
     Dosage: UNK
     Route: 048
  3. LYRICA [Suspect]
     Dosage: 75 MG, 2X/DAY
     Route: 048
     Dates: end: 20130915
  4. MAXZIDE [Concomitant]
     Dosage: UNK, DAILY
     Route: 048
  5. MAXZIDE [Concomitant]
     Dosage: UNK
  6. ZOLOFT [Concomitant]
     Dosage: UNK

REACTIONS (8)
  - Bone disorder [Unknown]
  - Feeling abnormal [Unknown]
  - Pain [Not Recovered/Not Resolved]
  - Somnolence [Unknown]
  - Fatigue [Recovered/Resolved]
  - Malaise [Unknown]
  - Drug tolerance [Unknown]
  - Limb discomfort [Unknown]
